FAERS Safety Report 7432324 (Version 5)
Quarter: 2012Q4

REPORT INFORMATION
  Report Type: Report from Study
  Country: JP (occurrence: JP)
  Receive Date: 20100624
  Receipt Date: 20121205
  Transmission Date: 20130627
  Serious: Yes (Hospitalization, Other)
  Sender: FDA-Public Use
  Company Number: PHHY2010JP38598

PATIENT
  Age: 69 Year
  Sex: Male
  Weight: 66 kg

DRUGS (10)
  1. AFINITOR [Suspect]
     Indication: METASTATIC RENAL CELL CARCINOMA
     Dosage: 10 mg, Daily
     Route: 048
     Dates: start: 20100420, end: 20100515
  2. AFINITOR [Suspect]
     Dosage: 5 mg, Daily
     Route: 048
     Dates: start: 20100607, end: 20100730
  3. OMEPRAL [Concomitant]
     Route: 048
     Dates: start: 20100420, end: 20100730
  4. CELECOX [Concomitant]
     Indication: METASTATIC RENAL CELL CARCINOMA
     Route: 048
     Dates: start: 20100420
  5. LASIX [Concomitant]
     Indication: METASTATIC RENAL CELL CARCINOMA
     Route: 048
     Dates: start: 20100420, end: 20100730
  6. MYSLEE [Concomitant]
     Route: 048
     Dates: start: 20100420, end: 20100730
  7. AZUNOL [Concomitant]
     Indication: PROPHYLAXIS
     Dates: start: 20100420
  8. NAIXAN [Concomitant]
     Indication: METASTATIC RENAL CELL CARCINOMA
     Route: 048
     Dates: start: 20100531, end: 20100730
  9. PREDNISOLONE [Concomitant]
     Indication: METASTATIC RENAL CELL CARCINOMA
     Route: 048
     Dates: start: 20100705, end: 20100730
  10. DOMPERIDONE [Concomitant]
     Indication: METASTATIC RENAL CELL CARCINOMA
     Route: 048
     Dates: start: 20100711, end: 20100730

REACTIONS (7)
  - Pharyngeal ulceration [Recovered/Resolved]
  - Aphagia [Not Recovered/Not Resolved]
  - Stomatitis [Recovered/Resolved]
  - Neoplasm progression [Not Recovered/Not Resolved]
  - Malignant neoplasm progression [Not Recovered/Not Resolved]
  - Haemoglobin decreased [Unknown]
  - Blood glucose increased [Not Recovered/Not Resolved]
